FAERS Safety Report 5626230-9 (Version None)
Quarter: 2008Q1

REPORT INFORMATION
  Report Type: 
  Country: None (occurrence: None)
  Receive Date: 20080214
  Receipt Date: 20080208
  Transmission Date: 20080703
  Serious: Yes (Life-Threatening)
  Sender: FDA-Public Use
  Company Number: B0506732A

PATIENT
  Sex: Female

DRUGS (5)
  1. AMOXICILLIN + CLAVULANATE POTASSIUM [Suspect]
     Indication: DRUG USE FOR UNKNOWN INDICATION
     Dosage: 2.2G PER DAY
     Route: 065
     Dates: start: 20071218
  2. RISPERIDONE [Suspect]
     Indication: DRUG USE FOR UNKNOWN INDICATION
     Dosage: 1MG PER DAY
     Route: 065
     Dates: start: 20071214
  3. TEMESTA [Concomitant]
     Dosage: .5MG PER DAY
     Route: 065
     Dates: start: 20071218, end: 20071219
  4. TEMESTA [Concomitant]
     Dosage: 1MG PER DAY
     Route: 065
     Dates: start: 20071220
  5. ENOXAPARIN SODIUM [Concomitant]
     Dosage: 20MG PER DAY
     Route: 065
     Dates: start: 20071216

REACTIONS (3)
  - ATRIAL FLUTTER [None]
  - CARDIAC FAILURE [None]
  - TACHYCARDIA [None]
